FAERS Safety Report 5588086-2 (Version None)
Quarter: 2008Q1

REPORT INFORMATION
  Report Type: 
  Country: None (occurrence: None)
  Receive Date: 20080111
  Receipt Date: 20080108
  Transmission Date: 20080703
  Serious: Yes (Death)
  Sender: FDA-Public Use
  Company Number: US-NOVOPROD-270848

PATIENT
  Age: 76 Year
  Sex: Female

DRUGS (2)
  1. NOVOLOG [Suspect]
     Indication: DIABETES MELLITUS
     Dosage: 3 IU, SINGLE
     Route: 058
     Dates: end: 20080101
  2. LEVEMIR [Suspect]
     Indication: DIABETES MELLITUS
     Dosage: 25 IU, SINGLE
     Route: 058
     Dates: end: 20080101

REACTIONS (1)
  - DEATH [None]
